FAERS Safety Report 21029495 (Version 2)
Quarter: 2022Q4

REPORT INFORMATION
  Report Type: Spontaneous
  Country: US (occurrence: US)
  Receive Date: 20220630
  Receipt Date: 20221115
  Transmission Date: 20230112
  Serious: No
  Sender: FDA-Public Use
  Company Number: US-LEO Pharma-343640

PATIENT
  Age: 80 Year
  Sex: Female

DRUGS (6)
  1. ADBRY [Suspect]
     Active Substance: TRALOKINUMAB-LDRM
     Indication: Dermatitis atopic
     Dosage: DOSAGE: 4 SYRINGES (600 MG) UNDER THE SKIN ON DAY 1, THEN START MAINTENANCE DOSING AS DIRECTED ON DA
     Route: 058
     Dates: start: 20220614
  2. ADBRY [Suspect]
     Active Substance: TRALOKINUMAB-LDRM
     Indication: Dermatitis atopic
     Dosage: DOSAGE: 4 SYRINGES (600 MG) UNDER THE SKIN ON DAY 1, THEN START MAINTENANCE DOSING AS DIRECTED ON DA
     Route: 058
     Dates: start: 20220614
  3. ADBRY [Suspect]
     Active Substance: TRALOKINUMAB-LDRM
     Indication: Dermatitis atopic
     Dosage: DOSAGE: 4 SYRINGES (600 MG) UNDER THE SKIN ON DAY 1, THEN START MAINTENANCE DOSING AS DIRECTED ON DA
     Route: 058
     Dates: start: 20220614
  4. ADBRY [Suspect]
     Active Substance: TRALOKINUMAB-LDRM
     Indication: Dermatitis atopic
     Dosage: DOSAGE : 4 SYRINGES (600 MG) UNDER THE SKIN ON DAY 1, THEN START MAINTENANCE DOSING AS DIRECTED ON D
     Route: 058
  5. ADBRY [Suspect]
     Active Substance: TRALOKINUMAB-LDRM
     Indication: Dermatitis atopic
     Dosage: DOSAGE : 4 SYRINGES (600 MG) UNDER THE SKIN ON DAY 1, THEN START MAINTENANCE DOSING AS DIRECTED ON D
     Route: 058
  6. ADBRY [Suspect]
     Active Substance: TRALOKINUMAB-LDRM
     Indication: Dermatitis atopic
     Dosage: DOSAGE : 4 SYRINGES (600 MG) UNDER THE SKIN ON DAY 1, THEN START MAINTENANCE DOSING AS DIRECTED ON D
     Route: 058

REACTIONS (4)
  - Rash [Not Recovered/Not Resolved]
  - Acne [Recovering/Resolving]
  - Hypersensitivity [Unknown]
  - Pruritus [Recovered/Resolved]

NARRATIVE: CASE EVENT DATE: 20220614
